FAERS Safety Report 25679485 (Version 1)
Quarter: 2025Q3

REPORT INFORMATION
  Report Type: Other
  Country: EU (occurrence: EU)
  Receive Date: 20250814
  Receipt Date: 20250814
  Transmission Date: 20251020
  Serious: Yes (Other)
  Sender: APPCO PHARMA LLC
  Company Number: EU-Appco Pharma LLC-2182469

PATIENT
  Age: 26 Year
  Sex: Male

DRUGS (1)
  1. ACETAZOLAMIDE [Suspect]
     Active Substance: ACETAZOLAMIDE
     Indication: Cystoid macular oedema
     Dates: start: 201805

REACTIONS (4)
  - Dizziness [Unknown]
  - Drug ineffective [Unknown]
  - Paraesthesia [Unknown]
  - Fatigue [Unknown]
